FAERS Safety Report 9820661 (Version 1)
Quarter: 2014Q1

REPORT INFORMATION
  Report Type: Spontaneous
  Country: GB (occurrence: GB)
  Receive Date: 20140116
  Receipt Date: 20140116
  Transmission Date: 20141002
  Serious: Yes (Other)
  Sender: FDA-Public Use
  Company Number: GB-PFIZER INC-2014011816

PATIENT
  Age: 70 Year
  Sex: Female
  Weight: 87.5 kg

DRUGS (5)
  1. RAMIPRIL [Suspect]
     Dosage: UNK
     Route: 065
     Dates: start: 20130917
  2. BENDROFLUMETHIAZIDE [Concomitant]
     Dosage: UNK
     Route: 065
     Dates: start: 20130917, end: 20131129
  3. AMLODIPINE [Concomitant]
     Dosage: UNK
     Route: 065
     Dates: start: 20130919, end: 20131017
  4. LOCORTEN-VIOFORM [Concomitant]
     Dosage: UNK
     Route: 065
     Dates: start: 20131003, end: 20131004
  5. TRIMETHOPRIM [Concomitant]
     Dosage: UNK
     Route: 065
     Dates: start: 20131115, end: 20131122

REACTIONS (5)
  - Genital haemorrhage [Recovered/Resolved]
  - Dry eye [Recovered/Resolved]
  - Mouth haemorrhage [Recovered/Resolved]
  - Epistaxis [Recovered/Resolved]
  - Vaginal haemorrhage [Recovered/Resolved]
